FAERS Safety Report 17652447 (Version 2)
Quarter: 2020Q2

REPORT INFORMATION
  Report Type: Report from Study
  Country: GB (occurrence: GB)
  Receive Date: 20200409
  Receipt Date: 20200619
  Transmission Date: 20200713
  Serious: Yes (Other)
  Sender: FDA-Public Use
  Company Number: NVSC2020GB096010

PATIENT
  Sex: Female

DRUGS (3)
  1. METHOTREXATE. [Suspect]
     Active Substance: METHOTREXATE
     Indication: PRODUCT USED FOR UNKNOWN INDICATION
     Dosage: UNK
     Route: 065
  2. HYRIMOZ [Suspect]
     Active Substance: ADALIMUMAB-ADAZ
     Indication: RHEUMATOID ARTHRITIS
     Dosage: 1 DF, Q2W
     Route: 058
     Dates: start: 20200128
  3. METHOTREXATE. [Suspect]
     Active Substance: METHOTREXATE
     Dosage: UNK
     Route: 065
     Dates: start: 20200406

REACTIONS (10)
  - Infection [Unknown]
  - Pain [Unknown]
  - Musculoskeletal pain [Unknown]
  - Glaucoma [Unknown]
  - Depression [Unknown]
  - Fatigue [Unknown]
  - Pain in extremity [Unknown]
  - Spinal pain [Unknown]
  - Cataract [Unknown]
  - Depressed mood [Unknown]
